FAERS Safety Report 10376002 (Version 1)
Quarter: 2014Q1

REPORT INFORMATION
  Report Type: Spontaneous
  Country: US (occurrence: None)
  Receive Date: 20140306
  Receipt Date: 20140306
  Transmission Date: 20141002
  Serious: Yes (Hospitalization)
  Sender: FDA-Public Use
  Company Number: 163-21880-13041946

PATIENT
  Age: 89 Year
  Sex: Male

DRUGS (2)
  1. REVLIMID [Suspect]
     Indication: PLASMA CELL MYELOMA
     Dosage: TEMPORARILY INTERRUPTED; 21 IN 21 D
     Route: 048
     Dates: start: 20100928
  2. CETIRIZINE HCL(CETIRIZINE HYDROCHLORIDE) (UNKNOWN) [Concomitant]

REACTIONS (1)
  - Fall [None]
